FAERS Safety Report 15249151 (Version 4)
Quarter: 2018Q4

REPORT INFORMATION
  Report Type: Report from Study
  Country: US (occurrence: US)
  Receive Date: 20180807
  Receipt Date: 20181206
  Transmission Date: 20190204
  Serious: No
  Sender: FDA-Public Use
  Company Number: PHEH2018US031528

PATIENT
  Sex: Male

DRUGS (1)
  1. COSENTYX [Suspect]
     Active Substance: SECUKINUMAB
     Indication: PSORIASIS
     Dosage: 300 MG, QMO
     Route: 058

REACTIONS (7)
  - Device malfunction [Unknown]
  - Eating disorder [Unknown]
  - Diarrhoea [Unknown]
  - Weight decreased [Unknown]
  - Oral pain [Unknown]
  - Stomatitis [Not Recovered/Not Resolved]
  - Glossodynia [Unknown]
